FAERS Safety Report 12438914 (Version 6)
Quarter: 2017Q1

REPORT INFORMATION
  Report Type: Spontaneous
  Country: JP (occurrence: JP)
  Receive Date: 20160606
  Receipt Date: 20170131
  Transmission Date: 20170428
  Serious: Yes (Death, Hospitalization, Other)
  Sender: FDA-Public Use
  Company Number: JP-MALLINCKRODT-T201602216

PATIENT
  Age: 66 Year
  Sex: Male
  Weight: 51 kg

DRUGS (26)
  1. METHADONE [Suspect]
     Active Substance: METHADONE HYDROCHLORIDE
     Dosage: 50 MG (DAILY DOSE 100 MG)
     Route: 048
     Dates: start: 20160307, end: 20160321
  2. DAIKENCHUTO [Concomitant]
     Active Substance: HERBALS
     Dosage: 7.5 G
     Route: 048
     Dates: end: 20160328
  3. AMLODIPINE [Concomitant]
     Active Substance: AMLODIPINE BESYLATE
     Dosage: 5 MG
     Route: 048
     Dates: end: 20160411
  4. PACLITAXEL. [Concomitant]
     Active Substance: PACLITAXEL
     Dosage: 190 MG
     Route: 051
     Dates: start: 20160209, end: 20160209
  5. GASTER [Concomitant]
     Active Substance: FAMOTIDINE
     Dosage: 20 MG
     Route: 051
     Dates: start: 20160209, end: 20160209
  6. METHADONE [Suspect]
     Active Substance: METHADONE HYDROCHLORIDE
     Dosage: 20 MG (DAILY DOSE 40 MG)
     Route: 048
     Dates: start: 20151225, end: 20160201
  7. METHADONE [Suspect]
     Active Substance: METHADONE HYDROCHLORIDE
     Dosage: 30 MG (DAILY DOSE 60 MG)
     Route: 048
     Dates: start: 20160208, end: 20160214
  8. SODIUM PICOSULFATE [Concomitant]
     Active Substance: SODIUM PICOSULFATE
     Dosage: 1 ML
     Route: 048
     Dates: end: 20160218
  9. METHADONE [Suspect]
     Active Substance: METHADONE HYDROCHLORIDE
     Dosage: 20 MG (DAILY DOSE 40 MG)
     Route: 048
     Dates: start: 20160322, end: 20160412
  10. OXIFAST [Concomitant]
     Active Substance: OXYCODONE
     Indication: ANALGESIC THERAPY
     Dosage: 10 MG, PRN
     Route: 051
     Dates: start: 20151210, end: 20151215
  11. OXIFAST [Concomitant]
     Active Substance: OXYCODONE
     Dosage: 72 MG
     Route: 051
     Dates: start: 20151210, end: 20151210
  12. OXYNORM [Concomitant]
     Active Substance: OXYCODONE HYDROCHLORIDE
     Indication: ANALGESIC THERAPY
     Dosage: 10 MG, PRN
     Route: 048
     Dates: start: 20151216
  13. XYLOCAINE [Concomitant]
     Active Substance: LIDOCAINE HYDROCHLORIDE
     Indication: ANALGESIC THERAPY
     Dosage: 10 ML
     Route: 051
     Dates: start: 20151211, end: 20151211
  14. RANMARK [Concomitant]
     Active Substance: DENOSUMAB
     Dosage: 120 MG
     Route: 058
     Dates: start: 20160202, end: 20160202
  15. NEXIUM [Concomitant]
     Active Substance: ESOMEPRAZOLE MAGNESIUM
     Indication: PROPHYLAXIS
     Dosage: 20 MG
     Route: 048
     Dates: end: 20160411
  16. METHADONE [Suspect]
     Active Substance: METHADONE HYDROCHLORIDE
     Dosage: 25 MG (DAILY DOSE 50 MG)
     Route: 048
     Dates: start: 20160202, end: 20160207
  17. FENTANYL CITRATE. [Concomitant]
     Active Substance: FENTANYL CITRATE
     Dosage: 2 MG, PRN
     Route: 051
     Dates: start: 20160307
  18. METHADONE [Suspect]
     Active Substance: METHADONE HYDROCHLORIDE
     Indication: CANCER PAIN
     Dosage: 10 MG (DAILY DOSE 30 MG)
     Route: 048
     Dates: start: 20151210, end: 20151224
  19. METHADONE [Suspect]
     Active Substance: METHADONE HYDROCHLORIDE
     Dosage: 40 MG (DAILY DOSE 80 MG)
     Route: 048
     Dates: start: 20160215, end: 20160306
  20. OXIFAST [Concomitant]
     Active Substance: OXYCODONE
     Dosage: 36 MG
     Route: 051
     Dates: start: 20151211, end: 20151212
  21. CELECOX [Concomitant]
     Active Substance: CELECOXIB
     Indication: ANALGESIC THERAPY
     Dosage: 400 MG
     Route: 048
     Dates: end: 20160328
  22. CYMBALTA [Concomitant]
     Active Substance: DULOXETINE HYDROCHLORIDE
     Indication: ANALGESIC THERAPY
     Dosage: 20 MG
     Route: 048
     Dates: end: 20160411
  23. MAGMITT [Concomitant]
     Active Substance: MAGNESIUM OXIDE
     Dosage: 1500 MG
     Route: 048
     Dates: end: 20160327
  24. VITAMIN B COMPLEX [Concomitant]
     Active Substance: CYANOCOBALAMIN\DEXPANTHENOL\NIACINAMIDE\PYRIDOXINE HYDROCHLORIDE\RIBOFLAVIN 5^-PHOSPHATE SODIUM\THIAMINE HYDROCHLORIDE\VITAMIN B COMPLEX
     Dosage: 10 ML
     Route: 051
     Dates: start: 20151210, end: 20151216
  25. DEXART [Concomitant]
     Active Substance: DEXAMETHASONE SODIUM PHOSPHATE
     Dosage: 6.6 MG
     Route: 051
     Dates: start: 20160209, end: 20160216
  26. GEMCITABINE [Concomitant]
     Active Substance: GEMCITABINE\GEMCITABINE HYDROCHLORIDE
     Dosage: 1000 MG
     Route: 051
     Dates: start: 20160209, end: 20160216

REACTIONS (10)
  - Hypermagnesaemia [Not Recovered/Not Resolved]
  - Constipation [Recovering/Resolving]
  - Abdominal distension [Not Recovered/Not Resolved]
  - Bladder cancer [Fatal]
  - Electrocardiogram QT prolonged [Not Recovered/Not Resolved]
  - Insomnia [Not Recovered/Not Resolved]
  - Pyrexia [Recovering/Resolving]
  - Prostate cancer [Fatal]
  - Acute kidney injury [Not Recovered/Not Resolved]
  - Somnolence [Not Recovered/Not Resolved]

NARRATIVE: CASE EVENT DATE: 20160108
